FAERS Safety Report 9383899 (Version 1)
Quarter: 2013Q3

REPORT INFORMATION
  Report Type: Spontaneous
  Country: IE (occurrence: IE)
  Receive Date: 20130705
  Receipt Date: 20130705
  Transmission Date: 20140515
  Serious: Yes (Other)
  Sender: FDA-Public Use
  Company Number: IE-JNJFOC-20130700042

PATIENT
  Sex: 0

DRUGS (1)
  1. CALPOL [Suspect]
     Indication: PROCEDURAL PAIN
     Dosage: 39.5 MGLKGLDAY
     Route: 065

REACTIONS (1)
  - Post procedural haemorrhage [Unknown]
